FAERS Safety Report 4727757-4 (Version None)
Quarter: 2005Q3

REPORT INFORMATION
  Report Type: 
  Country: None (occurrence: None)
  Receive Date: 20050727
  Receipt Date: 20050720
  Transmission Date: 20060218
  Serious: Yes (Hospitalization)
  Sender: FDA-Public Use
  Company Number: 2005EU001591

PATIENT
  Age: 60 Year
  Sex: Male
  Weight: 116 kg

DRUGS (10)
  1. PROGRAF [Suspect]
     Indication: HEART TRANSPLANT
     Dosage: 1.00 MG, UID/QD, ORAL
     Route: 048
  2. RAPAMUNE [Suspect]
     Indication: HEART TRANSPLANT
     Dosage: 2.00 MG, UID/QD, ORAL
     Route: 048
     Dates: start: 20050509
  3. CELLCEPT [Suspect]
     Indication: HEART TRANSPLANT
     Dosage: 1500.00 MG, UID/QD, ORAL
     Route: 048
  4. ALLOPURINOL [Suspect]
     Dosage: 300.00 MG, UID/QD,ORAL
     Route: 048
  5. NEURONTIN [Suspect]
     Dosage: 2400.00 MG, UID/QD,ORAL
     Route: 048
  6. LAROXYL (AMITRIPTYLINE HYDROCHLORIDE) 25MG [Suspect]
     Dosage: 25.00, UID/QD, ORAL
     Route: 048
     Dates: end: 20050526
  7. RIVOTRIL (CLONAZEPAM) [Concomitant]
  8. OROFCAL (CALCIUM CARBONATE) [Concomitant]
  9. FUROSEMIDE [Concomitant]
  10. LEVOTHYROXINE SODIUM [Concomitant]

REACTIONS (9)
  - BLOOD TRIGLYCERIDES INCREASED [None]
  - DEEP VEIN THROMBOSIS [None]
  - EPISTAXIS [None]
  - HEPATIC STEATOSIS [None]
  - HYPOALBUMINAEMIA [None]
  - NEUROPATHY PERIPHERAL [None]
  - PANCREATIC DISORDER [None]
  - PERICARDIAL EFFUSION [None]
  - PULMONARY EMBOLISM [None]
